FAERS Safety Report 5897799-4 (Version None)
Quarter: 2008Q3

REPORT INFORMATION
  Report Type: 
  Country: None (occurrence: None)
  Receive Date: 20080923
  Receipt Date: 20080912
  Transmission Date: 20090109
  Serious: Yes (Hospitalization)
  Sender: FDA-Public Use
  Company Number: 2008SP017782

PATIENT
  Sex: Male

DRUGS (3)
  1. LOTRICOMB (CLOTRIMAZOLE / BETAMETHASONE DIPROPIONATE) (CLOTRIMAZOLE/BE [Suspect]
     Indication: PENILE INFECTION
     Dosage: TOP
     Route: 061
     Dates: start: 20080815, end: 20080822
  2. INFECTOTRIMET (TRIMETHOPRIM) [Suspect]
     Indication: PENILE INFECTION
     Dosage: PO
     Route: 048
  3. DOXYCYCLINE [Suspect]
     Indication: PENILE INFECTION
     Dosage: PO
     Route: 048

REACTIONS (8)
  - ABDOMINAL PAIN UPPER [None]
  - ASTHENIA [None]
  - DRUG INTOLERANCE [None]
  - FEELING ABNORMAL [None]
  - HYPOAESTHESIA [None]
  - HYPOTONIA [None]
  - PARAESTHESIA [None]
  - SKIN BURNING SENSATION [None]
